FAERS Safety Report 9469599 (Version 3)
Quarter: 2014Q2

REPORT INFORMATION
  Report Type: Spontaneous
  Country: US (occurrence: US)
  Receive Date: 20130822
  Receipt Date: 20140418
  Transmission Date: 20141212
  Serious: Yes (Other)
  Sender: FDA-Public Use
  Company Number: US-BRISTOL-MYERS SQUIBB COMPANY-19190925

PATIENT
  Age: 62 Year
  Sex: Male

DRUGS (15)
  1. BYETTA [Suspect]
     Indication: TYPE 2 DIABETES MELLITUS
  2. PRANDIN [Concomitant]
  3. PROTONIX [Concomitant]
  4. FLONASE [Concomitant]
  5. IPRATROPIUM [Concomitant]
     Route: 045
  6. GLUCOPHAGE [Concomitant]
     Dosage: TABS
  7. ASPIRIN [Concomitant]
  8. SUCRALFATE [Concomitant]
  9. PANTOPRAZOLE [Concomitant]
  10. CARAFATE [Concomitant]
  11. SYNTHROID [Concomitant]
  12. VITAMIN D3 [Concomitant]
  13. FISH OIL [Concomitant]
  14. TRILIPIX [Concomitant]
     Dosage: CAPS
  15. CIALIS [Concomitant]
     Dosage: TABS

REACTIONS (2)
  - Thyroid cancer [Unknown]
  - Diarrhoea [Unknown]
